FAERS Safety Report 5909030-1 (Version None)
Quarter: 2008Q4

REPORT INFORMATION
  Report Type: 
  Country: None (occurrence: None)
  Receive Date: 20081001
  Receipt Date: 20080919
  Transmission Date: 20090506
  Serious: Yes (Other)
  Sender: FDA-Public Use
  Company Number: 2008-03465

PATIENT

DRUGS (3)
  1. VELCADE [Suspect]
     Indication: LEUKAEMIA PLASMACYTIC
     Dosage: 1.3 MG/M2,
  2. ADRIAMYCIN PFS [Suspect]
     Indication: LEUKAEMIA PLASMACYTIC
     Dosage: 9 MG/M2,
  3. DEXAMETHASONE TAB [Suspect]
     Indication: LEUKAEMIA PLASMACYTIC
     Dosage: 40 MG,

REACTIONS (10)
  - BENCE JONES PROTEIN URINE PRESENT [None]
  - BLOOD CREATININE INCREASED [None]
  - BONE PAIN [None]
  - DISEASE PROGRESSION [None]
  - HYPERCALCAEMIA [None]
  - LIGHT CHAIN ANALYSIS INCREASED [None]
  - NEUROPATHY PERIPHERAL [None]
  - PANCYTOPENIA [None]
  - SKIN INFECTION [None]
  - STAPHYLOCOCCAL BACTERAEMIA [None]
